FAERS Safety Report 7801403-5 (Version None)
Quarter: 2011Q4

REPORT INFORMATION
  Report Type: 
  Country: None (occurrence: None)
  Receive Date: 20111007
  Receipt Date: 20110926
  Transmission Date: 20120403
  Serious: Yes (Death, Other)
  Sender: FDA-Public Use
  Company Number: US-BAYER-200940452NA

PATIENT
  Age: 67 Year
  Sex: Male
  Weight: 66 kg

DRUGS (12)
  1. FENTANYL [Concomitant]
     Dosage: 20 ML, UNK
     Route: 042
     Dates: start: 20040526
  2. ANCEF [Concomitant]
     Dosage: 1 G, UNK
     Route: 042
     Dates: start: 20040526
  3. TRASYLOL [Suspect]
     Indication: MITRAL VALVE REPAIR
  4. PLATELETS [Concomitant]
     Dosage: 30 U, UNK
     Route: 042
     Dates: start: 20040526
  5. HEPARIN [Concomitant]
     Dosage: 1000 U, UNK
     Route: 042
     Dates: start: 20040526
  6. CONTRAST MEDIA [Concomitant]
     Indication: CATHETERISATION CARDIAC
     Dosage: UNK
     Dates: start: 20040519
  7. RED BLOOD CELLS [Concomitant]
     Dosage: 7 U, UNK
     Route: 042
     Dates: start: 20040526
  8. TRASYLOL [Suspect]
     Indication: CORONARY ARTERY BYPASS
     Dosage: 200 ML, UNK
     Route: 042
     Dates: start: 20040526, end: 20040526
  9. ALBUMIN (HUMAN) [Concomitant]
     Dosage: 360 ML, UNK
     Route: 042
     Dates: start: 20040526
  10. VERSED [Concomitant]
     Dosage: 2 MG, UNK
     Route: 042
     Dates: start: 20040526
  11. GENTAMYCIN SULFATE [Concomitant]
     Dosage: 80 MG, UNK
     Route: 042
     Dates: start: 20040526
  12. CONTRAST MEDIA [Concomitant]
     Indication: CARDIAC VENTRICULOGRAM

REACTIONS (14)
  - RENAL FAILURE [None]
  - INJURY [None]
  - STRESS [None]
  - RENAL IMPAIRMENT [None]
  - FEAR [None]
  - UNEVALUABLE EVENT [None]
  - ANHEDONIA [None]
  - ANXIETY [None]
  - RENAL INJURY [None]
  - DEATH [None]
  - MULTI-ORGAN FAILURE [None]
  - EMOTIONAL DISTRESS [None]
  - PAIN [None]
  - DEPRESSION [None]
